FAERS Safety Report 25438759 (Version 2)
Quarter: 2025Q2

REPORT INFORMATION
  Report Type: Spontaneous
  Country: US (occurrence: US)
  Receive Date: 20250616
  Receipt Date: 20250624
  Transmission Date: 20250716
  Serious: Yes (Hospitalization)
  Sender: ACCORD
  Company Number: US-MLMSERVICE-20250529-PI523225-00101-1

PATIENT
  Age: 44 Year
  Sex: Female
  Weight: 55.8 kg

DRUGS (12)
  1. METHOTREXATE [Suspect]
     Active Substance: METHOTREXATE
     Indication: Gestational trophoblastic tumour
  2. CISPLATIN [Suspect]
     Active Substance: CISPLATIN
     Indication: Gestational trophoblastic tumour
  3. ETOPOSIDE [Suspect]
     Active Substance: ETOPOSIDE
     Indication: Gestational trophoblastic tumour
  4. ACTINOMYCIN D [Suspect]
     Active Substance: DACTINOMYCIN
     Indication: Gestational trophoblastic tumour
  5. PEMBROLIZUMAB [Suspect]
     Active Substance: PEMBROLIZUMAB
     Indication: Gestational trophoblastic tumour
     Dosage: 200 MG EVERY 21 DAYS, FIRST LINE THERAPY, FIRST CYCLE
  6. TRANEXAMIC ACID [Concomitant]
     Active Substance: TRANEXAMIC ACID
     Indication: Haemoptysis
     Dosage: NEBULIZED, EVERY EIGHT HOURS FOR FIFTEEN DAYS
  7. PEMBROLIZUMAB [Suspect]
     Active Substance: PEMBROLIZUMAB
     Indication: Metastases to lung
     Dosage: 200 MG EVERY 21 DAYS, FIRST LINE THERAPY, FIRST CYCLE
  8. TRANEXAMIC ACID [Concomitant]
     Active Substance: TRANEXAMIC ACID
     Indication: Pulmonary alveolar haemorrhage
     Dosage: NEBULIZED, EVERY EIGHT HOURS FOR FIFTEEN DAYS
  9. ACTINOMYCIN D [Suspect]
     Active Substance: DACTINOMYCIN
     Indication: Metastases to lung
  10. ETOPOSIDE [Suspect]
     Active Substance: ETOPOSIDE
     Indication: Metastases to lung
  11. CISPLATIN [Suspect]
     Active Substance: CISPLATIN
     Indication: Metastases to lung
  12. METHOTREXATE [Suspect]
     Active Substance: METHOTREXATE
     Indication: Metastases to lung

REACTIONS (2)
  - Febrile neutropenia [Unknown]
  - Off label use [Unknown]
